FAERS Safety Report 5121415-2 (Version None)
Quarter: 2006Q4

REPORT INFORMATION
  Report Type: 
  Country: None (occurrence: None)
  Receive Date: 20061002
  Receipt Date: 20060921
  Transmission Date: 20070319
  Serious: Yes (Hospitalization)
  Sender: FDA-Public Use
  Company Number: 163-20785-06090904

PATIENT
  Age: 44 Year
  Sex: Male

DRUGS (2)
  1. THALOMID [Suspect]
     Indication: MULTIPLE MYELOMA
     Dosage: 200 MG, QD; ORAL, 100 MG, QD; ORAL
     Route: 048
     Dates: start: 20060825
  2. THALOMID [Suspect]
     Indication: MULTIPLE MYELOMA
     Dosage: 200 MG, QD; ORAL, 100 MG, QD; ORAL
     Route: 048
     Dates: start: 20060919

REACTIONS (2)
  - HIP FRACTURE [None]
  - PATHOLOGICAL FRACTURE [None]
